FAERS Safety Report 21606164 (Version 3)
Quarter: 2023Q1

REPORT INFORMATION
  Report Type: Spontaneous
  Country: JP (occurrence: JP)
  Receive Date: 20221117
  Receipt Date: 20230112
  Transmission Date: 20230418
  Serious: Yes (Hospitalization, Other)
  Sender: FDA-Public Use
  Company Number: JP-CHUGAI-2022045100

PATIENT
  Age: 91 Year
  Sex: Female
  Weight: 80 kg

DRUGS (20)
  1. VABYSMO [Suspect]
     Active Substance: FARICIMAB-SVOA
     Indication: Neovascular age-related macular degeneration
     Route: 031
     Dates: start: 20220617, end: 20220930
  2. ALFAROL [Concomitant]
     Active Substance: ALFACALCIDOL
     Dosage: UNK
     Route: 048
  3. ELDECALCITOL [Concomitant]
     Active Substance: ELDECALCITOL
     Route: 048
  4. EYLEA [Concomitant]
     Active Substance: AFLIBERCEPT
     Route: 065
     Dates: start: 201206
  5. JANUVIA [Concomitant]
     Active Substance: SITAGLIPTIN PHOSPHATE
     Route: 065
  6. METFORMIN HYDROCHLORIDE [Concomitant]
     Active Substance: METFORMIN HYDROCHLORIDE
     Dosage: UNK
     Route: 065
  7. IRBESARTAN [Concomitant]
     Active Substance: IRBESARTAN
     Dosage: UNK
     Route: 065
  8. AMLODIPINE BESYLATE [Concomitant]
     Active Substance: AMLODIPINE BESYLATE
     Dosage: UNK
     Route: 065
  9. ROSUVASTATIN CALCIUM [Concomitant]
     Active Substance: ROSUVASTATIN CALCIUM
     Dosage: UNK
     Route: 065
  10. TOVIAZ [Concomitant]
     Active Substance: FESOTERODINE FUMARATE
     Dosage: UNK
     Route: 065
  11. ALLOPURINOL [Concomitant]
     Active Substance: ALLOPURINOL
     Dosage: UNK
     Route: 065
  12. VONOPRAZAN FUMARATE [Concomitant]
     Active Substance: VONOPRAZAN FUMARATE
     Dosage: UNK
     Route: 065
  13. DIQUAFOSOL TETRASODIUM [Concomitant]
     Active Substance: DIQUAFOSOL TETRASODIUM
     Dosage: UNK
     Route: 065
  14. OFLOXACIN [Concomitant]
     Active Substance: OFLOXACIN
     Dosage: UNK
     Route: 065
  15. TRULICITY [Concomitant]
     Active Substance: DULAGLUTIDE
     Dosage: UNK
     Route: 065
  16. CELIPROLOL HYDROCHLORIDE [Concomitant]
     Active Substance: CELIPROLOL HYDROCHLORIDE
     Dosage: UNK
     Route: 065
  17. PROPIVERINE HYDROCHLORIDE [Concomitant]
     Active Substance: PROPIVERINE HYDROCHLORIDE
     Dosage: UNK
     Route: 065
  18. FELBINAC [Concomitant]
     Active Substance: FELBINAC
     Dosage: UNK
     Route: 065
  19. GLYCOSAMINOGLYCANS [Concomitant]
     Active Substance: GLYCOSAMINOGLYCANS
     Dosage: UNK
     Route: 065
  20. LOXOPROFEN SODIUM [Concomitant]
     Active Substance: LOXOPROFEN SODIUM
     Dosage: UNK
     Route: 061

REACTIONS (4)
  - Vitreous opacities [Recovered/Resolved with Sequelae]
  - Macular hole [Recovered/Resolved]
  - Iridocyclitis [Recovered/Resolved with Sequelae]
  - Uveitis [Recovered/Resolved with Sequelae]

NARRATIVE: CASE EVENT DATE: 20221001
